FAERS Safety Report 4879878-3 (Version None)
Quarter: 2006Q1

REPORT INFORMATION
  Report Type: 
  Country: None (occurrence: None)
  Receive Date: 20060113
  Receipt Date: 20051004
  Transmission Date: 20060701
  Serious: Yes (Hospitalization)
  Sender: FDA-Public Use
  Company Number: US-MERCK-0510USA03638

PATIENT
  Age: 63 Year
  Sex: Female
  Weight: 67 kg

DRUGS (8)
  1. VIOXX [Suspect]
     Indication: POLYMYALGIA RHEUMATICA
     Route: 048
     Dates: start: 20010101, end: 20021124
  2. VIOXX [Suspect]
     Indication: ARTHRITIS
     Route: 048
     Dates: start: 20010101, end: 20021124
  3. VIOXX [Suspect]
     Route: 048
     Dates: start: 20010101, end: 20021124
  4. PREDNISONE [Concomitant]
     Indication: ARTHRITIS
     Route: 065
     Dates: start: 20011226, end: 20020812
  5. PREDNISONE [Concomitant]
     Indication: PAIN
     Route: 065
     Dates: start: 20011226, end: 20020812
  6. MICARDIS [Concomitant]
     Indication: HYPERTENSION
     Route: 065
     Dates: start: 20020719, end: 20021124
  7. MICARDIS [Concomitant]
     Indication: CARDIAC DISORDER
     Route: 065
     Dates: start: 20020719, end: 20021124
  8. VIOXX [Suspect]
     Route: 048
     Dates: start: 20010101, end: 20021124

REACTIONS (4)
  - BLOOD CHOLESTEROL INCREASED [None]
  - HYPERTENSION [None]
  - HYPOKALAEMIA [None]
  - MYOCARDIAL INFARCTION [None]
